FAERS Safety Report 7760861-5 (Version None)
Quarter: 2011Q3

REPORT INFORMATION
  Report Type: 
  Country: None (occurrence: None)
  Receive Date: 20110919
  Receipt Date: 20110915
  Transmission Date: 20111222
  Serious: Yes (Hospitalization)
  Sender: FDA-Public Use
  Company Number: US-ABBOTT-11P-163-0848599-00

PATIENT
  Sex: Female

DRUGS (13)
  1. VERAPAMIL [Concomitant]
     Indication: HYPERTENSION
  2. TYLENOL-500 [Concomitant]
     Indication: PRODUCT USED FOR UNKNOWN INDICATION
  3. CENTRUM SILVER [Concomitant]
     Indication: VITAMIN SUPPLEMENTATION
  4. PAROXETINE HCL [Concomitant]
     Indication: PRODUCT USED FOR UNKNOWN INDICATION
  5. LISINOPRIL [Concomitant]
     Indication: HYPERTENSION
  6. OMEPRAZOLE [Concomitant]
     Indication: GASTROOESOPHAGEAL REFLUX DISEASE
  7. LORAZEPAM [Concomitant]
     Indication: PRODUCT USED FOR UNKNOWN INDICATION
  8. HUMIRA [Suspect]
     Indication: PSORIASIS
     Dates: start: 20110501
  9. ASTELIN [Concomitant]
     Indication: PRODUCT USED FOR UNKNOWN INDICATION
  10. ALLEGRA [Concomitant]
     Indication: PRODUCT USED FOR UNKNOWN INDICATION
  11. OSCAL [Concomitant]
     Indication: PRODUCT USED FOR UNKNOWN INDICATION
  12. URSODIOL [Concomitant]
     Indication: PRODUCT USED FOR UNKNOWN INDICATION
  13. TRIAMCINOLNE OINT [Concomitant]
     Indication: PSORIASIS
     Route: 061

REACTIONS (4)
  - BITE [None]
  - BACTERIAL INFECTION [None]
  - ARTHRALGIA [None]
  - CELLULITIS [None]
